FAERS Safety Report 6644965-6 (Version None)
Quarter: 2010Q1

REPORT INFORMATION
  Report Type: 
  Country: None (occurrence: None)
  Receive Date: 20100322
  Receipt Date: 20100310
  Transmission Date: 20100710
  Serious: Yes (Hospitalization)
  Sender: FDA-Public Use
  Company Number: PHEH2010US03048

PATIENT
  Sex: Female

DRUGS (2)
  1. GLEEVEC [Suspect]
     Indication: CHRONIC MYELOID LEUKAEMIA
     Dosage: 400 MG, QD
     Route: 048
  2. BARIUM [Interacting]
     Dosage: UNK
     Dates: start: 20091201

REACTIONS (4)
  - ABDOMINAL MASS [None]
  - DRUG INTERACTION [None]
  - LACRIMATION INCREASED [None]
  - MASS EXCISION [None]
